FAERS Safety Report 16340945 (Version 1)
Quarter: 2019Q2

REPORT INFORMATION
  Report Type: Spontaneous
  Country: BE (occurrence: BE)
  Receive Date: 20190522
  Receipt Date: 20190522
  Transmission Date: 20190711
  Serious: Yes (Other)
  Sender: FDA-Public Use
  Company Number: BE-ROCHE-2307930

PATIENT
  Age: 53 Year
  Sex: Female

DRUGS (8)
  1. TACROLIMUS. [Interacting]
     Active Substance: TACROLIMUS
     Route: 065
  2. TACROLIMUS. [Interacting]
     Active Substance: TACROLIMUS
     Dosage: DOSE RE-INCREASED AFTER DOSE REDUCED DURING OMBITASVIR/PARITAPREVIR/RITONAVIR AND RIBAVIRIN TREATMEN
     Route: 065
  3. TACROLIMUS. [Interacting]
     Active Substance: TACROLIMUS
     Indication: PROPHYLAXIS AGAINST TRANSPLANT REJECTION
     Route: 065
     Dates: start: 201109
  4. TACROLIMUS. [Interacting]
     Active Substance: TACROLIMUS
     Dosage: DOSE REDUCED DURING OMBITASVIR/PARITAPREVIR/RITONAVIR AND RIBAVIRIN TREATMENT
     Route: 065
  5. PEGINTERFERON ALFA-2A. [Suspect]
     Active Substance: PEGINTERFERON ALFA-2A
     Indication: CHRONIC HEPATITIS C
     Route: 065
     Dates: start: 2009
  6. RIBAVIRIN. [Interacting]
     Active Substance: RIBAVIRIN
     Dosage: WITH PEGYLATED INTERFERON
     Route: 065
     Dates: start: 2009
  7. RIBAVIRIN. [Interacting]
     Active Substance: RIBAVIRIN
     Indication: CHRONIC HEPATITIS C
     Route: 065
     Dates: start: 201605
  8. OMBITASVIR;PARITAPREVIR;RITONAVIR [Interacting]
     Active Substance: OMBITASVIR\PARITAPREVIR\RITONAVIR
     Indication: CHRONIC HEPATITIS C
     Route: 065
     Dates: start: 201605

REACTIONS (3)
  - Drug interaction [Unknown]
  - Diabetes mellitus [Unknown]
  - Liver transplant rejection [Recovering/Resolving]
